FAERS Safety Report 25383305 (Version 1)
Quarter: 2025Q2

REPORT INFORMATION
  Report Type: Spontaneous
  Country: US (occurrence: US)
  Receive Date: 20250602
  Receipt Date: 20250602
  Transmission Date: 20250717
  Serious: Yes (Other)
  Sender: SANOFI AVENTIS
  Company Number: US-SANOFI-02538145

PATIENT
  Sex: Female

DRUGS (1)
  1. SOLIQUA 100/33 [Suspect]
     Active Substance: INSULIN GLARGINE\LIXISENATIDE
     Indication: Type 2 diabetes mellitus
     Dosage: 20 IU, QD
     Route: 065

REACTIONS (4)
  - Dementia [Unknown]
  - Neoplasm malignant [Unknown]
  - Macular degeneration [Unknown]
  - Chronic obstructive pulmonary disease [Unknown]
